FAERS Safety Report 7442492-X (Version None)
Quarter: 2011Q2

REPORT INFORMATION
  Report Type: 
  Country: None (occurrence: None)
  Receive Date: 20110425
  Receipt Date: 20110425
  Transmission Date: 20111010
  Serious: Yes (Other)
  Sender: FDA-Public Use
  Company Number: None

PATIENT
  Sex: Male
  Weight: 139.4 kg

DRUGS (2)
  1. SOLU-MEDROL [Suspect]
  2. SOLU-MEDROL [Suspect]
     Indication: RESPIRATORY DISORDER
     Dosage: 1 DOSE
     Dates: start: 20110415, end: 20110415

REACTIONS (6)
  - BLOOD PRESSURE INCREASED [None]
  - ERYTHEMA [None]
  - OXYGEN SATURATION DECREASED [None]
  - BRADYCARDIA [None]
  - URTICARIA [None]
  - RASH [None]
